FAERS Safety Report 8258315-5 (Version None)
Quarter: 2012Q1

REPORT INFORMATION
  Report Type: 
  Country: None (occurrence: None)
  Receive Date: 20120322
  Receipt Date: 20120123
  Transmission Date: 20120608
  Serious: Yes (Hospitalization)
  Sender: FDA-Public Use
  Company Number: UTC-014887

PATIENT
  Age: 49 Year
  Sex: Female
  Weight: 85.45 kg

DRUGS (6)
  1. ADCIRCA [Concomitant]
  2. TYVASO [Suspect]
     Indication: LUNG DISORDER
     Dosage: 72 MCG (18 MCG, 4 IN 1 D), INHALATION, 288 MCG (72 MCG, 4 IN 1 D), INHALATION
     Route: 055
     Dates: start: 20110630
  3. TYVASO [Suspect]
     Indication: SARCOIDOSIS
     Dosage: 72 MCG (18 MCG, 4 IN 1 D), INHALATION, 288 MCG (72 MCG, 4 IN 1 D), INHALATION
     Route: 055
     Dates: start: 20110630
  4. TYVASO [Suspect]
     Indication: LUNG DISORDER
     Dosage: 72 MCG (18 MCG, 4 IN 1 D), INHALATION, 288 MCG (72 MCG, 4 IN 1 D), INHALATION
     Route: 055
     Dates: start: 20110602
  5. TYVASO [Suspect]
     Indication: SARCOIDOSIS
     Dosage: 72 MCG (18 MCG, 4 IN 1 D), INHALATION, 288 MCG (72 MCG, 4 IN 1 D), INHALATION
     Route: 055
     Dates: start: 20110602
  6. TRACLEER [Concomitant]

REACTIONS (1)
  - BRONCHITIS [None]
